FAERS Safety Report 24177661 (Version 1)
Quarter: 2024Q3

REPORT INFORMATION
  Report Type: Spontaneous
  Country: US (occurrence: US)
  Receive Date: 20240806
  Receipt Date: 20240806
  Transmission Date: 20241017
  Serious: No
  Sender: LUPIN
  Company Number: None

PATIENT

DRUGS (1)
  1. LISINOPRIL [Suspect]
     Active Substance: LISINOPRIL
     Indication: Product used for unknown indication
     Dosage: UNK
     Route: 065

REACTIONS (5)
  - Product formulation issue [Unknown]
  - Drug ineffective [Unknown]
  - Headache [Unknown]
  - Product substitution issue [Unknown]
  - Blood pressure increased [Unknown]
